FAERS Safety Report 4341294-0 (Version None)
Quarter: 2004Q1

REPORT INFORMATION
  Report Type: 
  Country: None (occurrence: None)
  Receive Date: 20040329
  Receipt Date: 20031204
  Transmission Date: 20041129
  Serious: No
  Sender: FDA-Public Use
  Company Number: 03P-163-0243809-00

PATIENT
  Age: 87 Year
  Sex: Female
  Weight: 68.0396 kg

DRUGS (7)
  1. HUMIRA [Suspect]
     Indication: RHEUMATOID ARTHRITIS
     Dosage: 40 MG, 1 IN 2 WK, SUBCUTANEOUS
     Route: 058
     Dates: start: 20030901
  2. METOPROLOL SUCCINATE [Concomitant]
  3. LOSARTAN POTASSIUM [Concomitant]
  4. OMEPRAZOLE [Concomitant]
  5. PROPACET 100 [Concomitant]
  6. ATORVASTATIN [Concomitant]
  7. PAROXETINE HCL [Concomitant]

REACTIONS (1)
  - BLOOD PRESSURE INCREASED [None]
